FAERS Safety Report 15757153 (Version 1)
Quarter: 2018Q4

REPORT INFORMATION
  Report Type: Spontaneous
  Country: US (occurrence: US)
  Receive Date: 20181224
  Receipt Date: 20181224
  Transmission Date: 20190205
  Serious: Yes (Hospitalization)
  Sender: FDA-Public Use
  Company Number: None

PATIENT
  Age: 72 Year
  Sex: Female

DRUGS (3)
  1. ENBREL [Suspect]
     Active Substance: ETANERCEPT
     Indication: PRODUCT USED FOR UNKNOWN INDICATION
     Dosage: ?          OTHER FREQUENCY:ONCE A WEEK;?
     Route: 058
  2. HYDROMET SYP 5-1.5/5 [Concomitant]
     Dates: start: 20181106
  3. CEFDINIR CAP 300MG [Concomitant]
     Active Substance: CEFDINIR
     Dates: start: 20181106

REACTIONS (2)
  - Joint effusion [None]
  - Pneumonia [None]

NARRATIVE: CASE EVENT DATE: 20181101
